FAERS Safety Report 12637822 (Version 1)
Quarter: 2016Q3

REPORT INFORMATION
  Report Type: Spontaneous
  Country: CN (occurrence: CN)
  Receive Date: 20160809
  Receipt Date: 20160809
  Transmission Date: 20161109
  Serious: Yes (Other)
  Sender: FDA-Public Use
  Company Number: CN-JNJFOC-20160722904

PATIENT

DRUGS (3)
  1. MOTRIN [Suspect]
     Active Substance: IBUPROFEN
     Route: 048
  2. FENTANYL. [Suspect]
     Active Substance: FENTANYL
     Indication: PROCEDURAL PAIN
     Dosage: DOSE: BACKGROUND DOSE 0.15MCG/KG/H, 1ML EACH TIME (I.E. ABOUT 0.25MCG/KG)
     Route: 042
  3. MOTRIN [Suspect]
     Active Substance: IBUPROFEN
     Indication: PROCEDURAL PAIN
     Route: 048

REACTIONS (5)
  - Product use issue [Recovering/Resolving]
  - Respiratory depression [Recovering/Resolving]
  - Urinary retention [Recovering/Resolving]
  - Off label use [Recovering/Resolving]
  - Vomiting [Recovering/Resolving]
